FAERS Safety Report 8315285-9 (Version None)
Quarter: 2012Q2

REPORT INFORMATION
  Report Type: 
  Country: None (occurrence: None)
  Receive Date: 20120426
  Receipt Date: 20120420
  Transmission Date: 20120825
  Serious: Yes (Hospitalization, Other)
  Sender: FDA-Public Use
  Company Number: US-PFIZER INC-2012069971

PATIENT
  Sex: Female

DRUGS (4)
  1. ZOCOR [Concomitant]
     Dosage: UNK
     Dates: end: 20110101
  2. WARFARIN [Concomitant]
     Dosage: UNK
  3. TIKOSYN [Suspect]
     Indication: ATRIAL FLUTTER
     Dosage: 0.25 MG, 2X/DAY
     Dates: start: 20110401
  4. DIOVAN [Concomitant]
     Dosage: UNK

REACTIONS (5)
  - CYTOMEGALOVIRUS HEPATITIS [None]
  - OESOPHAGEAL CANDIDIASIS [None]
  - CYTOMEGALOVIRUS INFECTION [None]
  - MALAISE [None]
  - PNEUMONIA [None]
